FAERS Safety Report 4636368-0 (Version None)
Quarter: 2005Q2

REPORT INFORMATION
  Report Type: 
  Country: None (occurrence: None)
  Receive Date: 20050415
  Receipt Date: 20000921
  Transmission Date: 20051028
  Serious: Yes (Hospitalization)
  Sender: FDA-Public Use
  Company Number: US-ROCHE-245762

PATIENT
  Age: 35 Year
  Sex: Male
  Weight: 72.6 kg

DRUGS (8)
  1. ACCUTANE [Suspect]
     Route: 048
     Dates: start: 20000615, end: 20000912
  2. ACCUTANE [Suspect]
     Route: 048
     Dates: start: 20001015
  3. ACCUTANE [Suspect]
     Dosage: FIRST COURSE IN 2001.
     Route: 048
     Dates: start: 20010615
  4. ACCUTANE [Suspect]
     Dosage: SECOND COURSE IN 2001.
     Route: 048
     Dates: start: 20010615
  5. FLOVENT [Concomitant]
     Indication: ASTHMA
     Route: 055
     Dates: start: 19990215
  6. ALBUTEROL [Concomitant]
     Indication: ASTHMA
     Route: 055
     Dates: start: 19920115
  7. CLARITIN [Concomitant]
     Route: 048
     Dates: start: 19980115
  8. NASACORT [Concomitant]
     Indication: NASAL POLYPS
     Route: 030
     Dates: start: 19990115

REACTIONS (6)
  - DRY SKIN [None]
  - GALLBLADDER DISORDER [None]
  - HAIR DISORDER [None]
  - LIP DRY [None]
  - LIP EXFOLIATION [None]
  - OILY SKIN [None]
